FAERS Safety Report 24076549 (Version 1)
Quarter: 2024Q3

REPORT INFORMATION
  Report Type: Spontaneous
  Country: FR (occurrence: FR)
  Receive Date: 20240711
  Receipt Date: 20240711
  Transmission Date: 20241016
  Serious: Yes (Life-Threatening)
  Sender: TEVA
  Company Number: None

PATIENT
  Age: 45 Year
  Sex: Female
  Weight: 79 kg

DRUGS (3)
  1. ETOPOSIDE [Suspect]
     Active Substance: ETOPOSIDE
     Indication: Testicular seminoma (pure)
     Dosage: TIME INTERVAL: TOTAL: ETOPOSIDE TEVA
     Route: 042
     Dates: start: 20240514, end: 20240608
  2. CISPLATIN [Suspect]
     Active Substance: CISPLATIN
     Indication: Testicular seminoma (pure)
     Dosage: TIME INTERVAL: TOTAL: CISPLATINE ACCORD
     Route: 042
     Dates: start: 20240514, end: 20240608
  3. BLEOMYCIN SULFATE [Suspect]
     Active Substance: BLEOMYCIN SULFATE
     Indication: Testicular seminoma (pure)
     Dosage: TIME INTERVAL: TOTAL
     Route: 042
     Dates: start: 20240516, end: 20240607

REACTIONS (2)
  - Peripheral artery thrombosis [Recovering/Resolving]
  - Cerebral artery thrombosis [Recovering/Resolving]

NARRATIVE: CASE EVENT DATE: 20240610
